FAERS Safety Report 14389800 (Version 32)
Quarter: 2024Q1

REPORT INFORMATION
  Report Type: Report from Study
  Country: CA (occurrence: CA)
  Receive Date: 20180115
  Receipt Date: 20240201
  Transmission Date: 20240410
  Serious: Yes (Hospitalization, Other)
  Sender: FDA-Public Use
  Company Number: PHHY2017CA153083

PATIENT
  Age: 59 Year
  Sex: Male

DRUGS (4)
  1. SANDOSTATIN LAR DEPOT [Suspect]
     Active Substance: OCTREOTIDE ACETATE
     Indication: Carcinoid tumour
     Dosage: 30 MG, QMO
     Route: 030
     Dates: start: 20170918
  2. SANDOSTATIN LAR DEPOT [Suspect]
     Active Substance: OCTREOTIDE ACETATE
     Dosage: 30 MG, QMO
     Route: 030
  3. SANDOSTATIN LAR DEPOT [Suspect]
     Active Substance: OCTREOTIDE ACETATE
     Dosage: 30 MG
     Route: 065
  4. SANDOSTATIN LAR DEPOT [Suspect]
     Active Substance: OCTREOTIDE ACETATE
     Dosage: UNK (IN AUGUST)
     Route: 030

REACTIONS (37)
  - Loss of consciousness [Unknown]
  - Nephrolithiasis [Unknown]
  - Blood urine [Unknown]
  - Immunosuppression [Recovering/Resolving]
  - Platelet count decreased [Recovering/Resolving]
  - Pollakiuria [Unknown]
  - Dysuria [Unknown]
  - Cystitis [Unknown]
  - Calculus bladder [Unknown]
  - Device occlusion [Unknown]
  - Haemorrhage urinary tract [Unknown]
  - Leukaemia [Unknown]
  - Second primary malignancy [Unknown]
  - Haemorrhage [Recovered/Resolved]
  - Neuroendocrine tumour [Unknown]
  - General physical health deterioration [Not Recovered/Not Resolved]
  - Polyp [Unknown]
  - Calculus urinary [Unknown]
  - Haemorrhoids [Unknown]
  - Blood pressure systolic increased [Unknown]
  - Blood pressure increased [Unknown]
  - Malaise [Unknown]
  - Chills [Unknown]
  - Hot flush [Unknown]
  - Hyperhidrosis [Unknown]
  - Pallor [Unknown]
  - Presyncope [Unknown]
  - Lung disorder [Unknown]
  - Needle issue [Unknown]
  - Nausea [Not Recovered/Not Resolved]
  - Vomiting [Not Recovered/Not Resolved]
  - Diarrhoea [Unknown]
  - Asthenia [Unknown]
  - Injection site mass [Recovering/Resolving]
  - Injection site discolouration [Unknown]
  - Injection site pain [Unknown]
  - Drug resistance [Unknown]

NARRATIVE: CASE EVENT DATE: 20171008
